FAERS Safety Report 12701108 (Version 3)
Quarter: 2016Q4

REPORT INFORMATION
  Report Type: Report from Study
  Country: US (occurrence: US)
  Receive Date: 20160831
  Receipt Date: 20161005
  Transmission Date: 20170207
  Serious: Yes (Other)
  Sender: FDA-Public Use
  Company Number: US-AMGEN-USASL2016111957

PATIENT
  Sex: Female

DRUGS (1)
  1. ENBREL [Suspect]
     Active Substance: ETANERCEPT
     Indication: RHEUMATOID ARTHRITIS
     Dosage: UNK
     Route: 065
     Dates: start: 2001, end: 201512

REACTIONS (4)
  - Unevaluable event [Recovered/Resolved]
  - Vitreous floaters [Recovered/Resolved]
  - Tooth abscess [Recovered/Resolved]
  - Fungal infection [Recovered/Resolved]
